FAERS Safety Report 5251275-0 (Version None)
Quarter: 2007Q1

REPORT INFORMATION
  Report Type: 
  Country: None (occurrence: None)
  Receive Date: 20070228
  Receipt Date: 20061221
  Transmission Date: 20070707
  Serious: No
  Sender: FDA-Public Use
  Company Number: US-GLAXOSMITHKLINE-A0632460A

PATIENT
  Age: 42 Year
  Sex: Female

DRUGS (2)
  1. LAMICTAL [Suspect]
     Indication: BIPOLAR DISORDER
     Dosage: 100MG PER DAY
     Route: 048
  2. REMERON [Suspect]
     Indication: INSOMNIA
     Route: 048
     Dates: start: 20061201, end: 20061201

REACTIONS (3)
  - DIZZINESS [None]
  - DRUG INTERACTION [None]
  - INSOMNIA [None]
